FAERS Safety Report 15265052 (Version 1)
Quarter: 2018Q3

REPORT INFORMATION
  Report Type: Spontaneous
  Country: CA (occurrence: CA)
  Receive Date: 20180810
  Receipt Date: 20180810
  Transmission Date: 20181010
  Serious: Yes (Other)
  Sender: FDA-Public Use
  Company Number: CA-ABBVIE-18S-028-2448272-00

PATIENT
  Sex: Female

DRUGS (3)
  1. SOMATULIN [Concomitant]
     Active Substance: LANREOTIDE ACETATE
     Indication: PRODUCT USED FOR UNKNOWN INDICATION
     Dosage: 120 MG, Q28D
     Route: 030
  2. SYNTHROID [Suspect]
     Active Substance: LEVOTHYROXINE SODIUM
     Indication: PRODUCT USED FOR UNKNOWN INDICATION
     Dosage: 0.75 MG, QD
     Route: 048
  3. CORTEF [Concomitant]
     Active Substance: HYDROCORTISONE
     Indication: PRODUCT USED FOR UNKNOWN INDICATION
     Dosage: 15 MG, QD
     Route: 048

REACTIONS (12)
  - Neck pain [Unknown]
  - Heart rate irregular [Unknown]
  - Sleep disorder [Unknown]
  - Syncope [Unknown]
  - Eye disorder [Unknown]
  - Acromegaly [Unknown]
  - Blood growth hormone increased [Unknown]
  - Fatigue [Unknown]
  - Arthritis [Unknown]
  - Headache [Unknown]
  - Insulin-like growth factor increased [Unknown]
  - Back pain [Unknown]
